FAERS Safety Report 8352738-1 (Version None)
Quarter: 2012Q2

REPORT INFORMATION
  Report Type: 
  Country: None (occurrence: None)
  Receive Date: 20120511
  Receipt Date: 20120502
  Transmission Date: 20120825
  Serious: Yes (Other)
  Sender: FDA-Public Use
  Company Number: US-SANOFI-AVENTIS-2012SA031169

PATIENT
  Age: 65 Year
  Sex: Female
  Weight: 76.7 kg

DRUGS (5)
  1. NAPROSYN [Concomitant]
  2. ALL OTHER THERAPEUTIC PRODUCTS [Concomitant]
  3. PREDNISONE [Concomitant]
  4. PLAVIX [Suspect]
     Dates: start: 20111001
  5. METOPROLOL TARTRATE [Concomitant]

REACTIONS (4)
  - ELECTROCARDIOGRAM CHANGE [None]
  - FATIGUE [None]
  - POLYMYALGIA RHEUMATICA [None]
  - PALPITATIONS [None]
